FAERS Safety Report 7729912-8 (Version None)
Quarter: 2011Q3

REPORT INFORMATION
  Report Type: 
  Country: None (occurrence: None)
  Receive Date: 20110906
  Receipt Date: 20110825
  Transmission Date: 20111222
  Serious: Yes (Hospitalization)
  Sender: FDA-Public Use
  Company Number: KR-ROCHE-799735

PATIENT
  Sex: Female
  Weight: 73 kg

DRUGS (2)
  1. TRASTUZUMAB [Suspect]
     Indication: BREAST CANCER
     Route: 042
     Dates: start: 20110223, end: 20110223
  2. TRASTUZUMAB [Suspect]
     Route: 042
     Dates: start: 20110317

REACTIONS (1)
  - HAEMATEMESIS [None]
